FAERS Safety Report 7644951-3 (Version None)
Quarter: 2011Q3

REPORT INFORMATION
  Report Type: 
  Country: None (occurrence: None)
  Receive Date: 20110729
  Receipt Date: 20110727
  Transmission Date: 20111222
  Serious: Yes (Death, Hospitalization)
  Sender: FDA-Public Use
  Company Number: US-GLAXOSMITHKLINE-A0931944A

PATIENT
  Sex: Male

DRUGS (1)
  1. VOTRIENT [Suspect]
     Indication: RENAL CANCER
     Dosage: 600MG PER DAY
     Route: 048
     Dates: start: 20110301, end: 20110601

REACTIONS (9)
  - DEATH [None]
  - BLOOD CREATININE INCREASED [None]
  - DRUG INEFFECTIVE [None]
  - PERFORMANCE STATUS DECREASED [None]
  - FATIGUE [None]
  - ASTHENIA [None]
  - DISEASE COMPLICATION [None]
  - HYPOTENSION [None]
  - DEHYDRATION [None]
